FAERS Safety Report 9869912 (Version 2)
Quarter: 2014Q1

REPORT INFORMATION
  Report Type: Spontaneous
  Country: GB (occurrence: None)
  Receive Date: 20140131
  Receipt Date: 20140324
  Transmission Date: 20141002
  Serious: Yes (Other)
  Sender: FDA-Public Use
  Company Number: AUR-APL-2014-00736

PATIENT
  Age: 24 Year
  Sex: Male
  Weight: 86 kg

DRUGS (1)
  1. CITALOPRAM [Suspect]
     Indication: PRODUCT USED FOR UNKNOWN INDICATION
     Dates: start: 20140107, end: 20140110

REACTIONS (6)
  - Tachycardia [None]
  - Hypertension [None]
  - Urticaria [None]
  - Rash macular [None]
  - Joint stiffness [None]
  - Urticaria [None]
